FAERS Safety Report 21502758 (Version 1)
Quarter: 2022Q4

REPORT INFORMATION
  Report Type: Spontaneous
  Country: IT (occurrence: IT)
  Receive Date: 20221025
  Receipt Date: 20221025
  Transmission Date: 20230112
  Serious: Yes (Death, Other)
  Sender: FDA-Public Use
  Company Number: IT-AMGEN-ITASP2022181415

PATIENT

DRUGS (2)
  1. BEVACIZUMAB [Suspect]
     Active Substance: BEVACIZUMAB
     Indication: Hepatocellular carcinoma
     Dosage: 5 MILLIGRAM PER KILOGRAM, Q2WK
     Route: 065
  2. NIVOLUMAB [Concomitant]
     Active Substance: NIVOLUMAB
     Indication: Hepatocellular carcinoma
     Dosage: 240 MILLIGRAM, Q2WK

REACTIONS (5)
  - Hepatocellular carcinoma [Fatal]
  - Transplant rejection [Recovered/Resolved]
  - Adverse drug reaction [Unknown]
  - Off label use [Unknown]
  - Therapeutic product effect incomplete [Unknown]
